FAERS Safety Report 8054171-9 (Version None)
Quarter: 2012Q1

REPORT INFORMATION
  Report Type: 
  Country: None (occurrence: None)
  Receive Date: 20120118
  Receipt Date: 20120116
  Transmission Date: 20120608
  Serious: Yes (Other)
  Sender: FDA-Public Use
  Company Number: US-PFIZER INC-2012012417

PATIENT
  Sex: Female
  Weight: 56.689 kg

DRUGS (9)
  1. LYRICA [Suspect]
     Indication: OSTEOARTHRITIS
  2. LYRICA [Suspect]
     Indication: RHEUMATOID ARTHRITIS
  3. XANAX [Suspect]
     Indication: ANXIETY DISORDER
     Dosage: 0.5 MG, 2X/DAY
     Route: 048
  4. LYRICA [Suspect]
     Indication: FIBROMYALGIA
     Dosage: 75 MG, 3X/DAY
     Route: 048
     Dates: start: 20060101
  5. LYRICA [Suspect]
     Indication: INTERVERTEBRAL DISC PROTRUSION
  6. LYRICA [Suspect]
     Indication: BONE DISORDER
  7. NORCO [Concomitant]
     Indication: PAIN
     Dosage: UNK
  8. ACETAMINOPHEN [Concomitant]
     Indication: PAIN
     Dosage: UNK
  9. METHADONE [Concomitant]
     Indication: PAIN
     Dosage: 10 MG, 3X/DAY

REACTIONS (8)
  - RHEUMATOID ARTHRITIS [None]
  - BLOOD CHOLESTEROL INCREASED [None]
  - BLOOD TRIGLYCERIDES INCREASED [None]
  - OSTEOARTHRITIS [None]
  - BONE DISORDER [None]
  - INTERVERTEBRAL DISC PROTRUSION [None]
  - MENISCUS LESION [None]
  - FIBROMYALGIA [None]
